FAERS Safety Report 8477219-6 (Version None)
Quarter: 2012Q2

REPORT INFORMATION
  Report Type: 
  Country: None (occurrence: None)
  Receive Date: 20120629
  Receipt Date: 20120625
  Transmission Date: 20120825
  Serious: Yes (Other)
  Sender: FDA-Public Use
  Company Number: US-AMGEN-USASP2011000338

PATIENT
  Age: 67 Year
  Sex: Female
  Weight: 54.422 kg

DRUGS (9)
  1. LISINOPRIL [Concomitant]
     Indication: HYPERTENSION
     Dosage: 20 MG, UNK
     Route: 048
     Dates: start: 20090915
  2. ATENOLOL [Concomitant]
     Indication: HYPERTENSION
     Dosage: 100 MG, QD
     Route: 048
     Dates: start: 20090915
  3. CRESTOR [Concomitant]
     Indication: BLOOD CHOLESTEROL
     Dosage: 10 MG, QD
     Route: 048
     Dates: start: 20090915
  4. ASPIRIN [Concomitant]
     Dosage: 81 MG, QD
     Route: 048
     Dates: start: 20090915
  5. NPLATE [Suspect]
     Indication: IDIOPATHIC THROMBOCYTOPENIC PURPURA
     Dosage: 3 MUG/KG, UNK
     Route: 058
     Dates: start: 20100225, end: 20100525
  6. NITROSTAT [Concomitant]
     Dosage: 0.4 MG, UNK
  7. PLAVIX [Concomitant]
     Dosage: 75 MG, UNK
  8. NORVASC [Concomitant]
     Dosage: 10 MG, UNK
  9. XANAX [Concomitant]
     Dosage: 0.5 MG, UNK

REACTIONS (1)
  - THERAPEUTIC RESPONSE DECREASED [None]
